FAERS Safety Report 9201911 (Version 1)
Quarter: 2013Q2

REPORT INFORMATION
  Report Type: Spontaneous
  Country: FR (occurrence: FR)
  Receive Date: 20130401
  Receipt Date: 20130401
  Transmission Date: 20140414
  Serious: Yes (Hospitalization)
  Sender: FDA-Public Use
  Company Number: FR-ROCHE-1208504

PATIENT
  Age: 76 Year
  Sex: Male

DRUGS (9)
  1. LUCENTIS [Suspect]
     Indication: AGE-RELATED MACULAR DEGENERATION
     Dosage: STRENGTH: 10 MG/ML
     Route: 050
     Dates: start: 20120103
  2. LUCENTIS [Suspect]
     Route: 050
     Dates: start: 20120906
  3. LUCENTIS [Suspect]
     Route: 050
     Dates: start: 20121204
  4. LUCENTIS [Suspect]
     Route: 050
     Dates: start: 201303
  5. ATARAX [Concomitant]
  6. SECTRAL [Concomitant]
  7. COZAAR [Concomitant]
  8. ASPEGIC [Concomitant]
  9. CRESTOR [Concomitant]

REACTIONS (1)
  - Transient ischaemic attack [Recovered/Resolved]
